FAERS Safety Report 12393920 (Version 1)
Quarter: 2016Q2

REPORT INFORMATION
  Report Type: Report from Study
  Country: US (occurrence: US)
  Receive Date: 20160523
  Receipt Date: 20160523
  Transmission Date: 20160815
  Serious: Yes (Other)
  Sender: FDA-Public Use
  Company Number: US-JNJFOC-20160518242

PATIENT
  Sex: Male

DRUGS (1)
  1. IMBRUVICA [Suspect]
     Active Substance: IBRUTINIB
     Indication: CHRONIC LYMPHOCYTIC LEUKAEMIA
     Route: 048
     Dates: start: 20160115

REACTIONS (6)
  - Dry mouth [Unknown]
  - Bronchitis [Unknown]
  - Stomatitis [Unknown]
  - Immunodeficiency [Unknown]
  - Arthralgia [Unknown]
  - Angina bullosa haemorrhagica [Unknown]
